FAERS Safety Report 13775943 (Version 1)
Quarter: 2017Q3

REPORT INFORMATION
  Report Type: Spontaneous
  Country: TR (occurrence: TR)
  Receive Date: 20170721
  Receipt Date: 20170721
  Transmission Date: 20171127
  Serious: Yes (Death, Life-Threatening, Congenital Anomaly)
  Sender: FDA-Public Use
  Company Number: TR-FRESENIUS KABI-FK201706145

PATIENT

DRUGS (1)
  1. VALPROATE [Suspect]
     Active Substance: VALPROIC ACID
     Indication: PRODUCT USED FOR UNKNOWN INDICATION
     Route: 064

REACTIONS (8)
  - Foetal exposure during pregnancy [Not Recovered/Not Resolved]
  - Pulmonary hypertension [Unknown]
  - Ectopic kidney [Unknown]
  - Respiratory failure [Fatal]
  - Foetal anticonvulsant syndrome [Not Recovered/Not Resolved]
  - Hiatus hernia [Unknown]
  - Gastric volvulus [Unknown]
  - Patent ductus arteriosus [Unknown]
